FAERS Safety Report 4352004-5 (Version None)
Quarter: 2004Q2

REPORT INFORMATION
  Report Type: 
  Country: None (occurrence: None)
  Receive Date: 20040503
  Receipt Date: 20031231
  Transmission Date: 20050107
  Serious: Yes (Death, Life-Threatening, Hospitalization)
  Sender: FDA-Public Use
  Company Number: US-AMGEN-US062593

PATIENT
  Sex: Female

DRUGS (5)
  1. ENBREL [Suspect]
     Indication: RHEUMATOID ARTHRITIS
     Route: 058
     Dates: start: 20021115, end: 20031219
  2. PREDNISONE [Concomitant]
     Dates: start: 20000501
  3. FOSAMAX [Concomitant]
  4. FOLIC ACID [Concomitant]
  5. EFFEXOR [Concomitant]

REACTIONS (5)
  - CARDIO-RESPIRATORY ARREST [None]
  - METABOLIC ACIDOSIS [None]
  - PNEUMONIA [None]
  - RESPIRATORY FAILURE [None]
  - SEPTIC SHOCK [None]
